FAERS Safety Report 4359095-6 (Version None)
Quarter: 2004Q2

REPORT INFORMATION
  Report Type: 
  Country: None (occurrence: None)
  Receive Date: 20040517
  Receipt Date: 20040517
  Transmission Date: 20050107
  Serious: Yes (Disabling, Other)
  Sender: FDA-Public Use
  Company Number: None

PATIENT
  Sex: Female
  Weight: 53.0709 kg

DRUGS (3)
  1. GEODON [Suspect]
     Indication: POST-TRAUMATIC STRESS DISORDER
     Dosage: ORAL/ 1 1/2 MONTH
  2. GEODON [Suspect]
     Indication: PSYCHOTIC DISORDER
     Dosage: ORAL/ 1 1/2 MONTH
  3. PFIZER [Concomitant]

REACTIONS (3)
  - DYSPHONIA [None]
  - DYSTONIA [None]
  - VOCAL CORD DISORDER [None]
